FAERS Safety Report 13105796 (Version 2)
Quarter: 2017Q2

REPORT INFORMATION
  Report Type: Spontaneous
  Country: US (occurrence: US)
  Receive Date: 20170111
  Receipt Date: 20170407
  Transmission Date: 20170830
  Serious: No
  Sender: FDA-Public Use
  Company Number: US-ALKERMES INC.-ALK-2016-003268

PATIENT
  Age: 24 Year
  Sex: Female
  Weight: 58.96 kg

DRUGS (1)
  1. ARISTADA [Suspect]
     Active Substance: ARIPIPRAZOLE LAUROXIL
     Indication: DEPRESSION
     Dosage: UNK, QMO
     Route: 030
     Dates: start: 20161028

REACTIONS (7)
  - Off label use [Not Recovered/Not Resolved]
  - Injection site pain [Unknown]
  - Drug administration error [Unknown]
  - Product use issue [Unknown]
  - Weight increased [Not Recovered/Not Resolved]
  - Injection site reaction [Unknown]
  - Rash pruritic [Not Recovered/Not Resolved]

NARRATIVE: CASE EVENT DATE: 20161028
